FAERS Safety Report 8500773-2 (Version None)
Quarter: 2012Q2

REPORT INFORMATION
  Report Type: 
  Country: None (occurrence: None)
  Receive Date: 20120405
  Receipt Date: 20091029
  Transmission Date: 20120825
  Serious: Yes (Disabling)
  Sender: FDA-Public Use
  Company Number: PHEH2009US09218

PATIENT
  Age: 79 Year
  Sex: Female
  Weight: 59.4 kg

DRUGS (12)
  1. CALCIUM CARBONATE [Concomitant]
  2. DEMADEX [Concomitant]
  3. ALTACE [Concomitant]
  4. PROCARDIA [Concomitant]
  5. GLUCOPHAGE [Concomitant]
  6. TOPROL-XL [Concomitant]
  7. AVALIDE [Concomitant]
  8. QUININE SULFATE [Concomitant]
  9. RECLAST [Suspect]
     Indication: OSTEOPOROSIS
     Dosage: 5 MG, ONCE/SINGLE, INFUSION
     Dates: start: 20090423
  10. CRESTOR [Concomitant]
  11. KLOR-CON [Concomitant]
  12. PLAVIX [Concomitant]

REACTIONS (3)
  - BONE PAIN [None]
  - MUSCULAR WEAKNESS [None]
  - ARTHRALGIA [None]
